FAERS Safety Report 7993105-X (Version None)
Quarter: 2011Q4

REPORT INFORMATION
  Report Type: 
  Country: None (occurrence: None)
  Receive Date: 20111219
  Receipt Date: 20110407
  Transmission Date: 20120403
  Serious: No
  Sender: FDA-Public Use
  Company Number: US-ASTRAZENECA-2011SE19724

PATIENT
  Age: 67 Year
  Sex: Female
  Weight: 86.2 kg

DRUGS (2)
  1. CRESTOR [Suspect]
     Route: 048
  2. AMODITINE [Concomitant]
     Indication: HYPERTENSION

REACTIONS (5)
  - HEADACHE [None]
  - DRY EYE [None]
  - DIZZINESS [None]
  - OCULAR HYPERAEMIA [None]
  - EYE IRRITATION [None]
